FAERS Safety Report 8071786-2 (Version None)
Quarter: 2012Q1

REPORT INFORMATION
  Report Type: 
  Country: None (occurrence: None)
  Receive Date: 20120126
  Receipt Date: 20120120
  Transmission Date: 20120608
  Serious: Yes (Hospitalization, Other)
  Sender: FDA-Public Use
  Company Number: FR-BIOGENIDEC-2011BI016354

PATIENT
  Age: 42 Year
  Sex: Female

DRUGS (6)
  1. CLONAZEPAM [Concomitant]
  2. AMANTADINE HCL [Concomitant]
  3. TYSABRI [Suspect]
     Indication: MULTIPLE SCLEROSIS
     Route: 042
     Dates: start: 20070101, end: 20110415
  4. LYRICA [Concomitant]
  5. FERROUS SULFATE TAB [Concomitant]
  6. ANAFRANIL [Concomitant]

REACTIONS (5)
  - THROMBOSIS [None]
  - STAPHYLOCOCCAL SEPSIS [None]
  - EPILEPSY [None]
  - PROGRESSIVE MULTIFOCAL LEUKOENCEPHALOPATHY [None]
  - IMMUNE RECONSTITUTION SYNDROME [None]
